FAERS Safety Report 11142216 (Version 6)
Quarter: 2015Q4

REPORT INFORMATION
  Report Type: Spontaneous
  Country: US (occurrence: US)
  Receive Date: 20150527
  Receipt Date: 20151105
  Transmission Date: 20160304
  Serious: Yes (Other)
  Sender: FDA-Public Use
  Company Number: US-PFIZER INC-2015177950

PATIENT
  Age: 77 Year
  Sex: Male
  Weight: 76 kg

DRUGS (10)
  1. SUTENT [Suspect]
     Active Substance: SUNITINIB MALATE
     Dosage: 37.5 MG, CYCLIC (DAILY FOR 4 WEEKS, THEN OFF FOR 2 WEEKS)
     Dates: start: 20140827
  2. SUTENT [Suspect]
     Active Substance: SUNITINIB MALATE
     Indication: RENAL CELL CARCINOMA STAGE IV
     Dosage: 50 MG, CYCLIC
     Dates: start: 20140626
  3. SUTENT [Suspect]
     Active Substance: SUNITINIB MALATE
     Dosage: 37 MG, CYCLIC (DAYS 1 THROUGH 14 EVERY 21 DAYS)
     Dates: start: 20150401, end: 20150415
  4. CENTRUM SILVER [Concomitant]
     Active Substance: MINERALS\VITAMINS
     Dosage: 1 DF, 1X/DAY
     Route: 048
     Dates: start: 20100715
  5. PHOSPHORUS [Concomitant]
     Active Substance: PHOSPHORUS
     Dosage: UNK
  6. LOSARTAN POTASSIUM. [Concomitant]
     Active Substance: LOSARTAN POTASSIUM
     Indication: HYPERTENSION
     Dosage: 50 MG, 1X/DAY
     Route: 048
     Dates: start: 20120316
  7. ASPIRIN. [Concomitant]
     Active Substance: ASPIRIN
     Dosage: 81 MG, 1X/DAY
     Route: 048
     Dates: start: 20100119
  8. VITAMIN B COMPLEX WITH C [Concomitant]
     Active Substance: ASCORBIC ACID\CALCIUM PANTOTHENATE\CYANOCOBALAMIN\NIACINAMIDE\PYRIDOXINE HYDROCHLORIDE\RIBOFLAVIN\THIAMINE MONONITRATE
     Dosage: UNK, 1X/DAY (TAKE 1 CAPSULE DAILY)
     Route: 048
     Dates: start: 20100715
  9. CALCIUM + MAGNESIUM + ZINK [Concomitant]
     Dosage: 1 DF, 2X/DAY
     Route: 048
     Dates: start: 20110119
  10. ZOCOR [Concomitant]
     Active Substance: SIMVASTATIN
     Indication: HYPERLIPIDAEMIA
     Dosage: 40 MG, 1X/DAY (ONE TABLET BY MOUTH AT BEDTIME)
     Route: 048
     Dates: start: 20100119

REACTIONS (19)
  - Chills [Unknown]
  - Dehydration [Unknown]
  - Nausea [Unknown]
  - Blood thyroid stimulating hormone increased [Unknown]
  - Essential hypertension [Unknown]
  - Weight decreased [Unknown]
  - Blood creatinine increased [Recovering/Resolving]
  - Anaemia [Unknown]
  - Renal cell carcinoma stage IV [Not Recovered/Not Resolved]
  - Bone pain [Unknown]
  - Vertigo [Recovered/Resolved]
  - Disease progression [Not Recovered/Not Resolved]
  - Malaise [Unknown]
  - Vomiting [Recovered/Resolved]
  - Nasal discomfort [Unknown]
  - Renal failure [Unknown]
  - Fatigue [Unknown]
  - Hypophagia [Recovering/Resolving]
  - Gastrointestinal motility disorder [Unknown]

NARRATIVE: CASE EVENT DATE: 201406
